FAERS Safety Report 18724575 (Version 1)
Quarter: 2021Q1

REPORT INFORMATION
  Report Type: Spontaneous
  Country: US (occurrence: US)
  Receive Date: 20210111
  Receipt Date: 20210111
  Transmission Date: 20210419
  Serious: No
  Sender: FDA-Public Use
  Company Number: US-MYLANLABS-2020M1106350

PATIENT
  Sex: Male

DRUGS (3)
  1. OXYGEN. [Concomitant]
     Active Substance: OXYGEN
  2. SOMA [Suspect]
     Active Substance: CARISOPRODOL
     Indication: MUSCLE SPASMS
     Dosage: 350 MILLIGRAM, TID
     Route: 048
     Dates: end: 2014
  3. SOMA [Suspect]
     Active Substance: CARISOPRODOL
     Indication: PAIN

REACTIONS (1)
  - Dyspnoea [Not Recovered/Not Resolved]
